FAERS Safety Report 4591393-3 (Version None)
Quarter: 2005Q1

REPORT INFORMATION
  Report Type: 
  Country: None (occurrence: None)
  Receive Date: 20050222
  Receipt Date: 20050209
  Transmission Date: 20050727
  Serious: Yes (Hospitalization)
  Sender: FDA-Public Use
  Company Number: S05-USA-00780-01

PATIENT
  Age: 88 Year
  Sex: Female
  Weight: 43.0917 kg

DRUGS (8)
  1. LEXAPRO [Suspect]
     Indication: DEPRESSION
     Dosage: 10 MG QD PO
     Route: 048
     Dates: start: 20040701, end: 20050207
  2. LISINOPRIL [Suspect]
     Indication: HYPERTENSION
     Dates: start: 20050203, end: 20050204
  3. THYROID TAB [Concomitant]
  4. NORPACE [Concomitant]
  5. DIGOXIN [Concomitant]
  6. ANTIVERT [Concomitant]
  7. ZETIA [Concomitant]
  8. LIPITOR [Concomitant]

REACTIONS (8)
  - COMA [None]
  - CONVULSION [None]
  - DYSKINESIA [None]
  - FALL [None]
  - HIP FRACTURE [None]
  - LIP DISCOLOURATION [None]
  - SWELLING FACE [None]
  - TONGUE DISCOLOURATION [None]
